FAERS Safety Report 7920383-5 (Version None)
Quarter: 2011Q4

REPORT INFORMATION
  Report Type: 
  Country: None (occurrence: None)
  Receive Date: 20111117
  Receipt Date: 20111103
  Transmission Date: 20120403
  Serious: Yes (Hospitalization)
  Sender: FDA-Public Use
  Company Number: DE-AMGEN-DEUCT2011059410

PATIENT
  Age: 75 Year
  Sex: Female
  Weight: 87.1 kg

DRUGS (15)
  1. ISONIAZID [Concomitant]
     Dosage: UNK
     Route: 048
     Dates: start: 20090401, end: 20091201
  2. CALCIMAGON                         /00751519/ [Concomitant]
     Indication: SLEEP DISORDER
     Dosage: UNK
     Route: 048
     Dates: start: 20080101
  3. PREDNISOLONE [Concomitant]
     Dosage: 7.5 - 0 - 2.5 UNK
     Route: 048
     Dates: start: 20080101, end: 20090701
  4. XIPAMIDE [Concomitant]
     Dosage: UNK
     Route: 048
  5. ENALAPRIL MALEATE [Concomitant]
     Dosage: UNK
     Route: 048
  6. TILIDINE [Concomitant]
     Dosage: UNK
     Route: 048
  7. METFORMIN HCL [Suspect]
     Indication: RHEUMATOID ARTHRITIS
     Dosage: 10 MG, WEEKLY
     Route: 058
     Dates: start: 20080401, end: 20091001
  8. PREDNISOLONE [Concomitant]
     Dosage: 5 MG, 1X/DAY
     Dates: start: 20090701, end: 20090826
  9. KATADOLON                          /00890102/ [Concomitant]
     Dosage: UNK
  10. VERAPAMIL [Concomitant]
     Dosage: UNK
     Route: 048
  11. IBUPROFEN [Concomitant]
     Dosage: 600 MG, AS NEEDED
     Route: 048
     Dates: start: 20080101
  12. ETANERCEPT [Suspect]
     Indication: RHEUMATOID ARTHRITIS
     Dosage: 50 MG, QWK
     Route: 058
     Dates: start: 20090522, end: 20091001
  13. ACETAMINOPHEN [Concomitant]
     Dosage: 500 MG, WHEN NEEDED UP TO 1000 MG THRICE DAILY
     Dates: start: 20090831
  14. PALLADONE [Concomitant]
     Dosage: UNK
  15. TEMAZEPAM [Concomitant]
     Indication: SLEEP DISORDER
     Dosage: UNK

REACTIONS (16)
  - GASTRIC ULCER [None]
  - OESOPHAGEAL CANDIDIASIS [None]
  - SUPRAVENTRICULAR EXTRASYSTOLES [None]
  - PLATELET COUNT INCREASED [None]
  - GASTRIC POLYPS [None]
  - NERVE ROOT LESION [None]
  - HIATUS HERNIA [None]
  - PANCREAS LIPOMATOSIS [None]
  - GASTRITIS EROSIVE [None]
  - BLOOD POTASSIUM DECREASED [None]
  - SUBILEUS [None]
  - INTERVERTEBRAL DISC PROTRUSION [None]
  - OSTEOCHONDROSIS [None]
  - PNEUMONIA [None]
  - HEPATIC STEATOSIS [None]
  - EROSIVE OESOPHAGITIS [None]
